FAERS Safety Report 4847604-X (Version None)
Quarter: 2005Q4

REPORT INFORMATION
  Report Type: 
  Country: None (occurrence: None)
  Receive Date: 20051207
  Receipt Date: 20051128
  Transmission Date: 20060501
  Serious: Yes (Hospitalization)
  Sender: FDA-Public Use
  Company Number: PHBS2005DE17446

PATIENT
  Age: 74 Year
  Sex: Male

DRUGS (11)
  1. BISOPROLOL [Concomitant]
     Indication: HYPERTENSION
     Dosage: 2.5 MG/D
     Route: 048
  2. LEVODOPA COMP. C [Concomitant]
     Indication: PARKINSON'S DISEASE
     Dosage: 400 MG/D
     Route: 048
  3. COMTESS [Suspect]
     Indication: PARKINSON'S DISEASE
     Dosage: 100 MG, QID
     Route: 048
  4. COMTESS [Suspect]
     Dosage: 100 MG, 5QD
     Route: 048
  5. COMTESS [Suspect]
     Dosage: 50 MG, 5QD
     Route: 048
     Dates: start: 20050714
  6. COMTESS [Suspect]
     Dosage: 100 MG, 5QD
     Route: 048
     Dates: start: 20050701, end: 20050905
  7. ZOCOR [Concomitant]
     Indication: HYPERCHOLESTEROLAEMIA
     Dosage: 10 MG/D
     Route: 048
  8. MIRTAZAPINE [Concomitant]
     Indication: DEPRESSION
     Dosage: 15 MG/D
     Route: 048
  9. ASPIRIN [Concomitant]
     Indication: ISCHAEMIA
     Dosage: 100 MG/D
     Route: 048
     Dates: start: 20050301, end: 20051018
  10. AMANTADINE HCL [Concomitant]
     Indication: PARKINSON'S DISEASE
     Dosage: 300 MG/D
     Route: 048
  11. PLAVIX [Concomitant]
     Indication: STENT PLACEMENT
     Dosage: 75 MG/D
     Route: 048
     Dates: start: 20050503, end: 20050929

REACTIONS (4)
  - ABDOMINAL PAIN UPPER [None]
  - COLITIS [None]
  - DIARRHOEA [None]
  - NAUSEA [None]
